FAERS Safety Report 8672984 (Version 5)
Quarter: 2013Q1

REPORT INFORMATION
  Report Type: Spontaneous
  Country: GB (occurrence: GB)
  Receive Date: 20120719
  Receipt Date: 20130220
  Transmission Date: 20140127
  Serious: Yes (Other)
  Sender: FDA-Public Use
  Company Number: GB-JNJFOC-20120705846

PATIENT
  Age: 4 Year
  Sex: Male
  Weight: 26.04 kg

DRUGS (4)
  1. CETIRIZINE HYDROCHLORIDE [Suspect]
     Route: 048
  2. CETIRIZINE HYDROCHLORIDE [Suspect]
     Indication: SEASONAL ALLERGY
     Route: 048
     Dates: start: 201206
  3. MELATONIN [Suspect]
     Indication: POOR QUALITY SLEEP
     Route: 048
     Dates: start: 201202, end: 2012
  4. MELATONIN [Suspect]
     Indication: POOR QUALITY SLEEP
     Route: 048
     Dates: start: 20120531

REACTIONS (4)
  - Loss of consciousness [Recovered/Resolved]
  - Somnolence [Recovered/Resolved]
  - Depressed level of consciousness [Recovered/Resolved]
  - Wrong drug administered [Unknown]
